FAERS Safety Report 5063263-8 (Version None)
Quarter: 2006Q3

REPORT INFORMATION
  Report Type: 
  Country: None (occurrence: None)
  Receive Date: 20060703
  Receipt Date: 20060505
  Transmission Date: 20061208
  Serious: No
  Sender: FDA-Public Use
  Company Number: 2006PV013351

PATIENT
  Age: 68 Year
  Sex: Male
  Weight: 122.0176 kg

DRUGS (6)
  1. SYMLIN [Suspect]
     Indication: DIABETES MELLITUS NON-INSULIN-DEPENDENT
     Dosage: 120 MCG; SC; 60 MCG; SC; 60 MCG; SC
     Route: 058
     Dates: start: 20060502, end: 20060510
  2. SYMLIN [Suspect]
     Indication: DIABETES MELLITUS NON-INSULIN-DEPENDENT
     Dosage: 120 MCG; SC; 60 MCG; SC; 60 MCG; SC
     Route: 058
     Dates: start: 20060401
  3. SYMLIN [Suspect]
     Indication: DIABETES MELLITUS NON-INSULIN-DEPENDENT
     Dosage: 120 MCG; SC; 60 MCG; SC; 60 MCG; SC
     Route: 058
     Dates: start: 20060511
  4. NOVOLOG [Concomitant]
  5. LANTUS [Concomitant]
  6. NPH INSULIN [Concomitant]

REACTIONS (4)
  - DRUG EFFECT DECREASED [None]
  - NAUSEA [None]
  - VOMITING [None]
  - WEIGHT DECREASED [None]
